FAERS Safety Report 16036177 (Version 1)
Quarter: 2019Q1

REPORT INFORMATION
  Report Type: Spontaneous
  Country: US (occurrence: US)
  Receive Date: 20190305
  Receipt Date: 20190305
  Transmission Date: 20190418
  Serious: No
  Sender: FDA-Public Use
  Company Number: US-ALLERGAN-1811921US

PATIENT
  Sex: Female

DRUGS (4)
  1. ESTRACE [Suspect]
     Active Substance: ESTRADIOL
     Indication: BLOOD OESTROGEN DECREASED
     Dosage: 1 APPLICATION 3 TIMES PER WEEK
     Route: 067
     Dates: start: 2014
  2. METFORMIN [Concomitant]
     Active Substance: METFORMIN HYDROCHLORIDE
     Indication: TYPE 2 DIABETES MELLITUS
     Dosage: 500 MG, QD
     Route: 048
  3. ESTRACE [Suspect]
     Active Substance: ESTRADIOL
     Indication: URINARY INCONTINENCE
  4. BYETTA [Concomitant]
     Active Substance: EXENATIDE
     Dosage: BEFORE MEALS

REACTIONS (2)
  - Urinary tract infection [Not Recovered/Not Resolved]
  - Off label use [Unknown]
